FAERS Safety Report 8168928-7 (Version None)
Quarter: 2012Q1

REPORT INFORMATION
  Report Type: 
  Country: None (occurrence: None)
  Receive Date: 20120227
  Receipt Date: 20120215
  Transmission Date: 20120608
  Serious: Yes (Hospitalization)
  Sender: FDA-Public Use
  Company Number: CA-JNJFOC-20120208375

PATIENT
  Age: 84 Year
  Sex: Male

DRUGS (3)
  1. ASPIRIN [Concomitant]
     Route: 065
  2. MOTRIN IB [Suspect]
     Route: 048
  3. MOTRIN IB [Suspect]
     Indication: MUSCULOSKELETAL DISCOMFORT
     Route: 048
     Dates: start: 20120213, end: 20120213

REACTIONS (2)
  - CHEST PAIN [None]
  - EXPIRED DRUG ADMINISTERED [None]
